FAERS Safety Report 4551669-2 (Version None)
Quarter: 2005Q1

REPORT INFORMATION
  Report Type: 
  Country: None (occurrence: None)
  Receive Date: 20050111
  Receipt Date: 20041230
  Transmission Date: 20050727
  Serious: Yes (Other)
  Sender: FDA-Public Use
  Company Number: 2005002066

PATIENT
  Age: 15 Year
  Sex: Female
  Weight: 68.0396 kg

DRUGS (1)
  1. DEPO-PROVERA [Suspect]
     Indication: ILL-DEFINED DISORDER
     Dosage: 150 MG (150 MG, FIRST AND MOST RECENT INJ.), INTRAMUSCULAR
     Route: 030
     Dates: start: 20041016, end: 20041016

REACTIONS (2)
  - METRORRHAGIA [None]
  - SMEAR CERVIX ABNORMAL [None]
